FAERS Safety Report 18169861 (Version 1)
Quarter: 2020Q3

REPORT INFORMATION
  Report Type: Spontaneous
  Country: US (occurrence: US)
  Receive Date: 20200819
  Receipt Date: 20200819
  Transmission Date: 20201103
  Serious: Yes (Hospitalization)
  Sender: FDA-Public Use
  Company Number: US-FRESENIUS KABI-FK202008385

PATIENT
  Age: 73 Year
  Sex: Male
  Weight: 90.3 kg

DRUGS (8)
  1. FLUOROURACIL INJECTION, USP [Suspect]
     Active Substance: FLUOROURACIL
     Indication: ADENOCARCINOMA PANCREAS
     Dosage: STRENGTH: 5000 MG/ 100 ML?2000 MG/M2 OVER 46 HOURS, EVERY 2 WEEKS?3 DOSES RECEIVED PRIOR TO EVENT ON
     Dates: start: 20191114, end: 20200708
  2. LOPERAMIDE HYDROCHLORIDE. [Concomitant]
     Active Substance: LOPERAMIDE HYDROCHLORIDE
     Indication: PRODUCT USED FOR UNKNOWN INDICATION
     Dosage: 2 MPG PO PRN
     Route: 048
  3. PROCHLORPERAZINE EDISYLATE. [Concomitant]
     Active Substance: PROCHLORPERAZINE EDISYLATE
     Indication: PRODUCT USED FOR UNKNOWN INDICATION
     Dosage: 10 MG PO PRN
     Route: 048
  4. APIXABAN [Concomitant]
     Active Substance: APIXABAN
     Indication: PRODUCT USED FOR UNKNOWN INDICATION
     Dosage: 5 MG, PO BID
     Route: 048
  5. IRINOTECAN [Suspect]
     Active Substance: IRINOTECAN
     Indication: ADENOCARCINOMA PANCREAS
     Route: 065
     Dates: end: 20191211
  6. ONDANSETRON [Concomitant]
     Active Substance: ONDANSETRON
     Indication: PRODUCT USED FOR UNKNOWN INDICATION
     Dosage: 8 MG PO PRN
     Route: 048
  7. FLUOROURACIL INJECTION, USP [Suspect]
     Active Substance: FLUOROURACIL
     Route: 065
     Dates: end: 20191211
  8. PARICALCITOL. [Suspect]
     Active Substance: PARICALCITOL
     Indication: ADENOCARCINOMA PANCREAS
     Route: 065
     Dates: end: 20191218

REACTIONS (1)
  - Hypotension [Recovered/Resolved]

NARRATIVE: CASE EVENT DATE: 20191226
